FAERS Safety Report 18561300 (Version 1)
Quarter: 2020Q4

REPORT INFORMATION
  Report Type: Spontaneous
  Country: US (occurrence: US)
  Receive Date: 20201130
  Receipt Date: 20201130
  Transmission Date: 20210114
  Serious: Yes (Other)
  Sender: FDA-Public Use
  Company Number: US-PFIZER INC-2020468574

PATIENT
  Age: 47 Year
  Sex: Female
  Weight: 78.02 kg

DRUGS (2)
  1. LYRICA [Suspect]
     Active Substance: PREGABALIN
     Indication: FIBROMYALGIA
     Dosage: 150 MG, 2X/DAY (ONE CAPSULE TWICE DAILY BY MOUTH)
     Route: 048
  2. TEGRETOL XR [Concomitant]
     Active Substance: CARBAMAZEPINE
     Indication: NEURALGIA
     Dosage: 200 MG, 2X/DAY
     Dates: start: 201408

REACTIONS (12)
  - Fibromyalgia [Unknown]
  - Seizure [Not Recovered/Not Resolved]
  - Fall [Not Recovered/Not Resolved]
  - Meniscus injury [Recovered/Resolved with Sequelae]
  - Coordination abnormal [Recovering/Resolving]
  - Tooth disorder [Unknown]
  - Loss of consciousness [Unknown]
  - Arthritis [Unknown]
  - Hypokinesia [Unknown]
  - Memory impairment [Recovering/Resolving]
  - Sjogren^s syndrome [Unknown]
  - Balance disorder [Recovering/Resolving]

NARRATIVE: CASE EVENT DATE: 2014
